FAERS Safety Report 15239108 (Version 1)
Quarter: 2018Q3

REPORT INFORMATION
  Report Type: Spontaneous
  Country: US (occurrence: US)
  Receive Date: 20180803
  Receipt Date: 20180803
  Transmission Date: 20181010
  Serious: No
  Sender: FDA-Public Use
  Company Number: US-ENDO PHARMACEUTICALS INC-2018-022759

PATIENT
  Sex: Female
  Weight: 77.11 kg

DRUGS (3)
  1. ANBESOL GEL EXTRA STRENGTH [Concomitant]
     Indication: PAIN
  2. PREDNISONE TABLETS [Suspect]
     Active Substance: PREDNISONE
     Indication: TEMPORAL ARTERITIS
     Dosage: 20 MG, UNKNOWN
     Route: 048
     Dates: start: 201708
  3. MARIJUANA [Concomitant]
     Active Substance: CANNABIS SATIVA SUBSP. INDICA TOP
     Indication: NEUROPATHY PERIPHERAL

REACTIONS (1)
  - Weight increased [Unknown]
